FAERS Safety Report 6265208-1 (Version None)
Quarter: 2009Q3

REPORT INFORMATION
  Report Type: 
  Country: None (occurrence: None)
  Receive Date: 20090713
  Receipt Date: 20090630
  Transmission Date: 20100115
  Serious: Yes (Hospitalization)
  Sender: FDA-Public Use
  Company Number: JP-ROCHE-639228

PATIENT
  Sex: Female
  Weight: 55 kg

DRUGS (22)
  1. XELODA [Suspect]
     Indication: BREAST CANCER
     Route: 048
     Dates: start: 20050525, end: 20051001
  2. XELODA [Suspect]
     Route: 048
     Dates: start: 20060830, end: 20070501
  3. XELODA [Suspect]
     Route: 048
     Dates: start: 20080903, end: 20090415
  4. PREDNISOLONE [Concomitant]
     Dosage: DOSE : 4 TABLETS A DAY
  5. ADRIACIN [Concomitant]
     Route: 042
     Dates: start: 20051130, end: 20060405
  6. ADRIACIN [Concomitant]
     Route: 042
     Dates: start: 20080522
  7. ADRIACIN [Concomitant]
     Route: 042
     Dates: start: 20080728
  8. ENDOXAN [Concomitant]
     Route: 042
     Dates: start: 20051130, end: 20060405
  9. NAVELBINE [Concomitant]
     Route: 042
     Dates: start: 20060426, end: 20060816
  10. NAVELBINE [Concomitant]
     Route: 042
     Dates: start: 20070516, end: 20071226
  11. NAVELBINE [Concomitant]
     Route: 042
     Dates: start: 20080611, end: 20080709
  12. PICIBANIL [Concomitant]
     Dates: start: 20080522
  13. PICIBANIL [Concomitant]
     Dates: start: 20080728
  14. EURODIN [Concomitant]
     Route: 048
  15. MELBIN [Concomitant]
     Route: 048
  16. GLIMICRON [Concomitant]
     Route: 048
  17. PERDIPINE [Concomitant]
     Route: 048
  18. CARDENALIN [Concomitant]
     Route: 048
  19. PRAVASTATIN SODIUM [Concomitant]
     Route: 048
  20. HIBON [Concomitant]
     Route: 048
  21. COMELIAN [Concomitant]
     Route: 048
  22. SELBEX [Concomitant]
     Route: 048

REACTIONS (1)
  - INTERSTITIAL LUNG DISEASE [None]
